FAERS Safety Report 15643831 (Version 2)
Quarter: 2018Q4

REPORT INFORMATION
  Report Type: Spontaneous
  Country: US (occurrence: US)
  Receive Date: 20181121
  Receipt Date: 20181130
  Transmission Date: 20190205
  Serious: No
  Sender: FDA-Public Use
  Company Number: US-PFIZER INC-2018478698

PATIENT
  Age: 5 Year
  Sex: Male

DRUGS (1)
  1. GENOTROPIN [Suspect]
     Active Substance: SOMATROPIN
     Dosage: 0.8 MG, DAILY
     Dates: start: 20170719

REACTIONS (5)
  - Blood calcium increased [Unknown]
  - Increased appetite [Unknown]
  - Abdominal pain upper [Unknown]
  - Blood potassium decreased [Unknown]
  - Blood alkaline phosphatase increased [Unknown]
